FAERS Safety Report 23152985 (Version 1)
Quarter: 2023Q4

REPORT INFORMATION
  Report Type: Other
  Country: None (occurrence: US)
  Receive Date: 20231107
  Receipt Date: 20231107
  Transmission Date: 20240109
  Serious: Yes (Hospitalization)
  Sender: FDA-Public Use
  Company Number: US-B.Braun Medical Inc.-2147859

PATIENT
  Age: 54 Year
  Sex: Male

DRUGS (12)
  1. ACETAMINOPHEN [Suspect]
     Active Substance: ACETAMINOPHEN
  2. LORAZEPAM [Suspect]
     Active Substance: LORAZEPAM
  3. CHLORDIAZEPOXIDE [Suspect]
     Active Substance: CHLORDIAZEPOXIDE
  4. METOPROLOL [Suspect]
     Active Substance: METOPROLOL
  5. ASPIRIN [Suspect]
     Active Substance: ASPIRIN
  6. GABAPENTIN [Suspect]
     Active Substance: GABAPENTIN
  7. DULOXETINE [Suspect]
     Active Substance: DULOXETINE
  8. ATORVASTATIN [Suspect]
     Active Substance: ATORVASTATIN
  9. NALTREXONE [Suspect]
     Active Substance: NALTREXONE
  10. ACAMPROSATE [Suspect]
     Active Substance: ACAMPROSATE
  11. INSULIN NOS [Suspect]
     Active Substance: INSULIN NOS
  12. THIAMINE [Suspect]
     Active Substance: THIAMINE

REACTIONS (1)
  - Delirium [None]
